FAERS Safety Report 14488674 (Version 1)
Quarter: 2018Q1

REPORT INFORMATION
  Report Type: Spontaneous
  Country: US (occurrence: US)
  Receive Date: 20180205
  Receipt Date: 20180205
  Transmission Date: 20180509
  Serious: No
  Sender: FDA-Public Use
  Company Number: US-ACTELION-A-US2017-148457

PATIENT
  Age: 71 Year
  Sex: Male

DRUGS (8)
  1. OPSUMIT [Suspect]
     Active Substance: MACITENTAN
     Indication: CHRONIC RESPIRATORY FAILURE
     Dosage: 10 MG, UNK
     Route: 048
     Dates: start: 20170103
  2. LASIX [Concomitant]
     Active Substance: FUROSEMIDE
  3. LOPRESSOR HCT [Concomitant]
     Active Substance: HYDROCHLOROTHIAZIDE\METOPROLOL TARTRATE
  4. SILDENAFIL. [Concomitant]
     Active Substance: SILDENAFIL
  5. LIPITOR [Concomitant]
     Active Substance: ATORVASTATIN CALCIUM
  6. PROSCAR [Concomitant]
     Active Substance: FINASTERIDE
  7. METOPROLOL TARTRATE. [Concomitant]
     Active Substance: METOPROLOL TARTRATE
  8. ZESTRIL [Concomitant]
     Active Substance: LISINOPRIL

REACTIONS (2)
  - Hypotension [Not Recovered/Not Resolved]
  - Gastrooesophageal reflux disease [Unknown]
